FAERS Safety Report 6194104-3 (Version None)
Quarter: 2009Q2

REPORT INFORMATION
  Report Type: 
  Country: None (occurrence: None)
  Receive Date: 20090518
  Receipt Date: 20090508
  Transmission Date: 20091009
  Serious: Yes (Hospitalization)
  Sender: FDA-Public Use
  Company Number: PHHO2008US14697

PATIENT
  Sex: Female
  Weight: 97.6 kg

DRUGS (5)
  1. RAD 666 RAD+TAB+PTR [Suspect]
     Indication: RENAL TRANSPLANT
     Dosage: UNK
     Dates: start: 20060921, end: 20080730
  2. RAD 666 RAD+TAB+PTR [Suspect]
     Dosage: UNK
     Dates: start: 20080731, end: 20080825
  3. NEORAL [Concomitant]
     Dosage: 125 MG, BID
     Dates: start: 20080809, end: 20080821
  4. NEORAL [Concomitant]
     Dosage: 125 MG, QD
     Dates: start: 20080822
  5. PREDNISONE [Concomitant]

REACTIONS (3)
  - CONCOMITANT DISEASE PROGRESSION [None]
  - POST PROCEDURAL SWELLING [None]
  - SEROMA [None]
